FAERS Safety Report 8548693-1 (Version None)
Quarter: 2012Q3

REPORT INFORMATION
  Report Type: 
  Country: None (occurrence: None)
  Receive Date: 20120720
  Receipt Date: 20120720
  Transmission Date: 20120928
  Serious: Yes (Hospitalization)
  Sender: FDA-Public Use
  Company Number: None

PATIENT
  Age: 4 Year
  Sex: Female
  Weight: 15 kg

DRUGS (1)
  1. SULFASALAZINE [Suspect]
     Dosage: ENDOSINUSIAL
     Route: 006

REACTIONS (11)
  - TACHYCARDIA [None]
  - OEDEMA [None]
  - NO THERAPEUTIC RESPONSE [None]
  - RASH [None]
  - ERYTHEMA [None]
  - PRURITUS [None]
  - HYPOPHAGIA [None]
  - PHARYNGITIS STREPTOCOCCAL [None]
  - HEPATIC ENZYME INCREASED [None]
  - FLUID INTAKE REDUCED [None]
  - PYREXIA [None]
